FAERS Safety Report 6944209-1 (Version None)
Quarter: 2010Q3

REPORT INFORMATION
  Report Type: 
  Country: None (occurrence: None)
  Receive Date: 20100827
  Receipt Date: 20100819
  Transmission Date: 20110219
  Serious: No
  Sender: FDA-Public Use
  Company Number: US-BIOGENIDEC-2010BI029014

PATIENT
  Age: 47 Year
  Sex: Female

DRUGS (2)
  1. TYSABRI [Suspect]
     Indication: MULTIPLE SCLEROSIS
     Route: 042
     Dates: start: 20091216
  2. AVONEX [Concomitant]
     Indication: MULTIPLE SCLEROSIS

REACTIONS (5)
  - ABDOMINAL PAIN UPPER [None]
  - COUGH [None]
  - MULTIPLE SCLEROSIS RELAPSE [None]
  - NAUSEA [None]
  - RHINORRHOEA [None]
